FAERS Safety Report 4528598-3 (Version None)
Quarter: 2004Q4

REPORT INFORMATION
  Report Type: 
  Country: None (occurrence: None)
  Receive Date: 20041216
  Receipt Date: 20041208
  Transmission Date: 20050328
  Serious: Yes (Hospitalization, Other)
  Sender: FDA-Public Use
  Company Number: FR-BRISTOL-MYERS SQUIBB COMPANY-12790176

PATIENT
  Age: 46 Year
  Sex: Male

DRUGS (2)
  1. APROVEL [Suspect]
     Route: 048
     Dates: start: 20041020, end: 20041109
  2. KERLONE [Concomitant]
     Dosage: LONG-TERM TRT

REACTIONS (5)
  - ALCOHOLISM [None]
  - CONFUSIONAL STATE [None]
  - GASTROENTERITIS [None]
  - HYPONATRAEMIA [None]
  - POLYDIPSIA PSYCHOGENIC [None]
